FAERS Safety Report 20405808 (Version 1)
Quarter: 2022Q1

REPORT INFORMATION
  Report Type: Spontaneous
  Country: SI (occurrence: SI)
  Receive Date: 20220131
  Receipt Date: 20220131
  Transmission Date: 20220424
  Serious: Yes (Death, Life-Threatening, Hospitalization)
  Sender: FDA-Public Use
  Company Number: None

PATIENT
  Age: 97 Year
  Sex: Female
  Weight: 62 kg

DRUGS (16)
  1. AMOXICILLIN\CLAVULANATE POTASSIUM [Suspect]
     Active Substance: AMOXICILLIN\CLAVULANATE POTASSIUM
     Indication: Infection
     Dosage: 1 DOSAGE FORM, Q12H
     Route: 048
     Dates: start: 20220103, end: 20220110
  2. SINTROM [Suspect]
     Active Substance: ACENOCOUMAROL
     Indication: Atrial fibrillation
     Dosage: 4 MG (0,25 TBL IN THE EVENING)
     Route: 048
  3. METILDIGOXIN [Concomitant]
     Active Substance: METILDIGOXIN
     Indication: Atrial fibrillation
     Dosage: 0.1 MG (FROM MONDAY TO FRIDAY, WEEKEND BREAK)
     Route: 048
  4. PANTOPRAZOLE SODIUM [Concomitant]
     Active Substance: PANTOPRAZOLE SODIUM
     Indication: Prophylaxis
     Dosage: 20 MG, QD (IN THE MORNING)
     Route: 048
  5. OLIVIN [Concomitant]
     Indication: Hypertension
     Dosage: 20 MG
     Route: 048
  6. CHOLECALCIFEROL [Concomitant]
     Active Substance: CHOLECALCIFEROL
     Indication: Osteoporosis
     Dosage: 35 DRP (35GTT/WEEK)
     Route: 048
  7. FERROUS SULFATE [Concomitant]
     Active Substance: FERROUS SULFATE
     Indication: Anaemia
     Dosage: 80 MG (2X1)
     Route: 048
  8. ANALGIN [Concomitant]
     Indication: Sciatica
     Dosage: 500 MG (UP TO 3X1)
     Route: 048
  9. ANALGIN [Concomitant]
     Indication: Polymyalgia rheumatica
  10. XAPIMANT [Concomitant]
     Indication: Cognitive disorder
     Dosage: 20 MG (1/2 TBL IN THE MORNING)
     Route: 048
  11. ACETAMINOPHEN [Concomitant]
     Active Substance: ACETAMINOPHEN
     Indication: Polymyalgia rheumatica
     Dosage: 500 MG
     Route: 048
  12. ACETAMINOPHEN [Concomitant]
     Active Substance: ACETAMINOPHEN
     Indication: Sciatica
  13. FUROSEMIDE [Concomitant]
     Active Substance: FUROSEMIDE
     Indication: Product used for unknown indication
     Dosage: 40 MG (2X1)
     Route: 048
  14. FERRUM LEK [Concomitant]
     Indication: Anaemia
     Dosage: 15 ML (2X DAILY)
     Route: 048
  15. KALCIJEV KARBONAT KRKA [Concomitant]
     Indication: Osteoporosis
     Dosage: 1 G (1/2 TBL AT NOON)
     Route: 048
  16. FOLACIN [Concomitant]
     Indication: Anaemia
     Dosage: 5 MG (IN THE MORNING)
     Route: 048

REACTIONS (1)
  - Haematemesis [Fatal]
